FAERS Safety Report 21096958 (Version 2)
Quarter: 2022Q3

REPORT INFORMATION
  Report Type: Other
  Country: GB (occurrence: GB)
  Receive Date: 20220718
  Receipt Date: 20220809
  Transmission Date: 20221026
  Serious: Yes (Hospitalization)
  Sender: FDA-Public Use
  Company Number: None

PATIENT
  Age: 52 Year
  Sex: Male
  Weight: 98.3 kg

DRUGS (8)
  1. MORPHINE SULFATE [Suspect]
     Active Substance: MORPHINE SULFATE
     Indication: Product used for unknown indication
     Dosage: UNK
     Route: 065
     Dates: start: 2021
  2. CARBOPLATIN [Suspect]
     Active Substance: CARBOPLATIN
     Indication: Product used for unknown indication
     Dosage: UNK, CYCLICAL, AUC 5 (ON DAY 1 OF EACH 28-DAY CYCLE) (START DATE: 28 OCT 2021)
     Route: 042
  3. CARBOPLATIN [Suspect]
     Active Substance: CARBOPLATIN
     Dosage: CYCLICAL AUC 5 (ON DAY 1 OF EACH 28-DAY CYCLE)
     Route: 042
  4. GABAPENTIN [Suspect]
     Active Substance: GABAPENTIN
     Indication: Product used for unknown indication
     Dosage: UNK (CAPSULE)
     Route: 065
     Dates: start: 2021
  5. ORAMORPH SR SUSTAINED RELEASE [Suspect]
     Active Substance: MORPHINE SULFATE
     Indication: Product used for unknown indication
     Dosage: UNK
     Route: 065
     Dates: start: 2021
  6. PACLITAXEL [Suspect]
     Active Substance: PACLITAXEL
     Indication: Product used for unknown indication
     Dosage: 80 MILLIGRAM/SQ. METER, CYCLICAL (ON DAYS 1, 8 AND 15 OF EACH 28-DAY CYCLE)
     Route: 042
  7. PACLITAXEL [Suspect]
     Active Substance: PACLITAXEL
     Dosage: 80 MILLIGRAM/SQ. METER, CYCLICAL (C2D1, ON DAYS 1, 8 AND 15 OF EACH 28-DAY CYCLE) (START AND STOP DA
     Route: 042
  8. PACLITAXEL [Suspect]
     Active Substance: PACLITAXEL
     Dosage: 80 MILLIGRAM/SQ. METER, CYCLICAL (ON DAYS 1, 8 AND 15 OF EACH 28-DAY CYCLE) (START DATE: 28 OCT 2021
     Route: 042

REACTIONS (4)
  - Wound infection [Not Recovered/Not Resolved]
  - Neutropenic sepsis [Unknown]
  - Infusion related reaction [Recovered/Resolved]
  - Somnolence [Not Recovered/Not Resolved]

NARRATIVE: CASE EVENT DATE: 20210101
